FAERS Safety Report 13938190 (Version 3)
Quarter: 2017Q3

REPORT INFORMATION
  Report Type: Spontaneous
  Country: AT (occurrence: AT)
  Receive Date: 20170905
  Receipt Date: 20170907
  Transmission Date: 20171127
  Serious: Yes (Death, Hospitalization)
  Sender: FDA-Public Use
  Company Number: AT-ABBVIE-17P-009-2088888-00

PATIENT
  Age: 68 Year
  Sex: Male
  Weight: 94 kg

DRUGS (1)
  1. VENCLYXTO [Suspect]
     Active Substance: VENETOCLAX
     Indication: ACUTE MYELOID LEUKAEMIA
     Route: 048
     Dates: start: 20170719

REACTIONS (6)
  - Cerebral haemorrhage [Fatal]
  - Fall [Unknown]
  - Thrombocytopenia [Fatal]
  - Off label use [Unknown]
  - Brain herniation [Fatal]
  - Somnolence [Unknown]

NARRATIVE: CASE EVENT DATE: 20170828
